FAERS Safety Report 4630871-5 (Version None)
Quarter: 2005Q2

REPORT INFORMATION
  Report Type: 
  Country: None (occurrence: None)
  Receive Date: 20050408
  Receipt Date: 20030707
  Transmission Date: 20051028
  Serious: Yes (Life-Threatening, Hospitalization)
  Sender: FDA-Public Use
  Company Number: US-KINGPHARMUSA00001-K200301158

PATIENT
  Age: 81 Year
  Sex: Male
  Weight: 74 kg

DRUGS (11)
  1. ALTACE [Suspect]
     Indication: PROPHYLAXIS
     Dosage: 5 MG, QD
     Route: 048
     Dates: start: 20030301, end: 20030409
  2. MICARDIS [Suspect]
     Indication: PROPHYLAXIS
     Dosage: 40 MG, QD
     Route: 048
     Dates: start: 20030301, end: 20030409
  3. AMITRIPTYLINE HCL TAB [Concomitant]
  4. CARBIDOPA [Concomitant]
  5. LEVODOPA [Concomitant]
  6. DIGOXIN [Concomitant]
  7. FINASTERIDE [Concomitant]
  8. PRAMIPEXOLE [Concomitant]
  9. TERAZOSIN [Concomitant]
  10. RABEPRAZOLE SODIUM [Concomitant]
  11. WARFARIN [Concomitant]

REACTIONS (6)
  - ACIDOSIS [None]
  - ACUTE PRERENAL FAILURE [None]
  - BRADYCARDIA [None]
  - CARDIOACTIVE DRUG LEVEL INCREASED [None]
  - HYPERKALAEMIA [None]
  - HYPOTENSION [None]
